FAERS Safety Report 7349486-3 (Version None)
Quarter: 2011Q1

REPORT INFORMATION
  Report Type: 
  Country: None (occurrence: None)
  Receive Date: 20110314
  Receipt Date: 20100810
  Transmission Date: 20110831
  Serious: No
  Sender: FDA-Public Use
  Company Number: A0874897A

PATIENT
  Age: 10 Year
  Sex: Male

DRUGS (2)
  1. NYSTATIN [Concomitant]
  2. AUGMENTIN XR [Suspect]
     Indication: INFECTION
     Dosage: 1TAB TWICE PER DAY
     Route: 048
     Dates: start: 20100810

REACTIONS (3)
  - ABDOMINAL DISCOMFORT [None]
  - DIARRHOEA [None]
  - VOMITING [None]
